FAERS Safety Report 8329918-4 (Version None)
Quarter: 2012Q2

REPORT INFORMATION
  Report Type: 
  Country: None (occurrence: None)
  Receive Date: 20120502
  Receipt Date: 20120423
  Transmission Date: 20120825
  Serious: Yes (Other)
  Sender: FDA-Public Use
  Company Number: GB-ABBOTT-12P-167-0924110-00

PATIENT
  Sex: Female

DRUGS (1)
  1. LEUPROLIDE ACETATE [Suspect]
     Indication: ENDOMETRIOSIS
     Route: 030
     Dates: start: 20120302

REACTIONS (3)
  - INCORRECT DRUG ADMINISTRATION DURATION [None]
  - PAIN [None]
  - DRUG INEFFECTIVE [None]
